FAERS Safety Report 10149817 (Version 1)
Quarter: 2014Q2

REPORT INFORMATION
  Report Type: Spontaneous
  Country: JP (occurrence: None)
  Receive Date: 20140430
  Receipt Date: 20140430
  Transmission Date: 20141212
  Serious: No
  Sender: FDA-Public Use
  Company Number: B0987671A

PATIENT
  Sex: Female

DRUGS (3)
  1. PAROXETINE HYDROCHLORIDE TABLETS [Suspect]
     Indication: PRODUCT USED FOR UNKNOWN INDICATION
     Route: 048
     Dates: start: 20140418
  2. ETHYL LOFLAZEPATE [Concomitant]
  3. ETIZOLAM [Concomitant]

REACTIONS (3)
  - Self injurious behaviour [None]
  - Feeling abnormal [None]
  - Laceration [None]
